FAERS Safety Report 7949473-8 (Version None)
Quarter: 2011Q4

REPORT INFORMATION
  Report Type: 
  Country: None (occurrence: None)
  Receive Date: 20111130
  Receipt Date: 20111024
  Transmission Date: 20120403
  Serious: Yes (Disabling)
  Sender: FDA-Public Use
  Company Number: DE-GLAXOSMITHKLINE-D0073140A

PATIENT
  Sex: Female
  Weight: 68 kg

DRUGS (1)
  1. MALARONE [Suspect]
     Route: 048
     Dates: start: 20110824, end: 20111013

REACTIONS (5)
  - GASTRITIS [None]
  - PANIC ATTACK [None]
  - ABDOMINAL PAIN UPPER [None]
  - ANXIETY [None]
  - SLEEP DISORDER [None]
